FAERS Safety Report 21236198 (Version 3)
Quarter: 2024Q3

REPORT INFORMATION
  Report Type: Other
  Country: GT (occurrence: GT)
  Receive Date: 20220822
  Receipt Date: 20240813
  Transmission Date: 20241017
  Serious: Yes (Other)
  Sender: TOLMAR
  Company Number: GT-TOLMAR, INC.-22GT035902

PATIENT
  Age: 77 Year
  Sex: Male

DRUGS (6)
  1. ELIGARD [Suspect]
     Active Substance: LEUPROLIDE ACETATE
     Indication: Prostate cancer
     Dosage: 45 MILLIGRAM, Q 6 MONTH
     Route: 058
     Dates: start: 202112
  2. ELIGARD [Suspect]
     Active Substance: LEUPROLIDE ACETATE
     Dosage: 45 MILLIGRAM, Q 6 MONTH
     Route: 058
     Dates: start: 20220330
  3. ELIGARD [Suspect]
     Active Substance: LEUPROLIDE ACETATE
     Dosage: 45 MILLIGRAM, Q 6 MONTH
     Route: 058
     Dates: start: 20240417
  4. RADIATION THERAPY [Suspect]
     Active Substance: RADIATION THERAPY
     Indication: Product used for unknown indication
     Dosage: UNK
     Dates: start: 202205
  5. BICALUTAMIDE [Suspect]
     Active Substance: BICALUTAMIDE
     Indication: Prostate cancer
     Dosage: UNK
     Dates: start: 2022
  6. BICALUTAMIDE [Suspect]
     Active Substance: BICALUTAMIDE
     Dosage: 50 MILLIGRAM, QD
     Dates: start: 202404

REACTIONS (10)
  - Neoplasm progression [Unknown]
  - Blood testosterone increased [Not Recovered/Not Resolved]
  - Reduced bladder capacity [Not Recovered/Not Resolved]
  - Mood swings [Not Recovered/Not Resolved]
  - Micturition disorder [Unknown]
  - Hypoaesthesia [Unknown]
  - Injection site mass [Not Recovered/Not Resolved]
  - Bone pain [Not Recovered/Not Resolved]
  - Arthralgia [Not Recovered/Not Resolved]
  - Pollakiuria [Unknown]

NARRATIVE: CASE EVENT DATE: 20211201
